FAERS Safety Report 18077392 (Version 2)
Quarter: 2020Q3

REPORT INFORMATION
  Report Type: Spontaneous
  Country: US (occurrence: US)
  Receive Date: 20200727
  Receipt Date: 20200814
  Transmission Date: 20201103
  Serious: Yes (Other)
  Sender: FDA-Public Use
  Company Number: US-GILEAD-2020-0485708

PATIENT
  Age: 73 Year
  Sex: Male
  Weight: 91.5 kg

DRUGS (36)
  1. BUDESONIDE. [Concomitant]
     Active Substance: BUDESONIDE
  2. ENOXAPARIN [Concomitant]
     Active Substance: ENOXAPARIN
  3. MEROPENEM. [Concomitant]
     Active Substance: MEROPENEM
  4. CISATRACURIUM. [Concomitant]
     Active Substance: CISATRACURIUM
  5. INSULIN LISPRO [Concomitant]
     Active Substance: INSULIN LISPRO
  6. NOREPINEPHRINE. [Concomitant]
     Active Substance: NOREPINEPHRINE
  7. PLASMA [Concomitant]
     Active Substance: HUMAN PLASMA
  8. CEFEPIME [Concomitant]
     Active Substance: CEFEPIME HYDROCHLORIDE
  9. CARVEDILOL. [Concomitant]
     Active Substance: CARVEDILOL
  10. FUROSEMIDE. [Concomitant]
     Active Substance: FUROSEMIDE
  11. GLUCAGON. [Concomitant]
     Active Substance: GLUCAGON
  12. PLASMALYTE A [Concomitant]
  13. VITAMIN C [Concomitant]
     Active Substance: ASCORBIC ACID
  14. DEXTROSE. [Concomitant]
     Active Substance: DEXTROSE
  15. PHENYLEPHRINE [Concomitant]
     Active Substance: PHENYLEPHRINE HYDROCHLORIDE
  16. FENTANYL. [Concomitant]
     Active Substance: FENTANYL
  17. QUETIAPINE. [Concomitant]
     Active Substance: QUETIAPINE
  18. LISINOPRIL. [Concomitant]
     Active Substance: LISINOPRIL
  19. REMDESIVIR. [Suspect]
     Active Substance: REMDESIVIR
     Indication: COVID-19
     Dosage: 100 MG, QD
     Route: 065
     Dates: start: 20200708, end: 20200711
  20. TOCILIZUMAB. [Concomitant]
     Active Substance: TOCILIZUMAB
  21. CHOLECALCIFEROL [Concomitant]
     Active Substance: CHOLECALCIFEROL
  22. ZINC. [Concomitant]
     Active Substance: ZINC
  23. DEXAMETHASONE. [Concomitant]
     Active Substance: DEXAMETHASONE
  24. CEFTRIAXONE. [Concomitant]
     Active Substance: CEFTRIAXONE
  25. ATORVASTATIN [Concomitant]
     Active Substance: ATORVASTATIN
  26. SODIUM BICARBONATE. [Concomitant]
     Active Substance: SODIUM BICARBONATE
  27. VASOPRESSIN. [Concomitant]
     Active Substance: VASOPRESSIN
  28. ALBUTEROL [SALBUTAMOL] [Concomitant]
     Active Substance: ALBUTEROL
  29. MORPHINE [Concomitant]
     Active Substance: MORPHINE
  30. AZITHROMYCIN ANHYDROUS. [Concomitant]
     Active Substance: AZITHROMYCIN ANHYDROUS
  31. SODIUM CHLORIDE. [Concomitant]
     Active Substance: SODIUM CHLORIDE
  32. EPOPROSTENOL. [Concomitant]
     Active Substance: EPOPROSTENOL
  33. FINASTERIDE. [Concomitant]
     Active Substance: FINASTERIDE
  34. KAYEXALATE [Concomitant]
     Active Substance: SODIUM POLYSTYRENE SULFONATE
  35. INSULIN REGULAR [INSULIN BOVINE] [Concomitant]
     Active Substance: INSULIN BEEF
  36. AMLODIPINE [Concomitant]
     Active Substance: AMLODIPINE BESYLATE

REACTIONS (1)
  - Alanine aminotransferase increased [Not Recovered/Not Resolved]

NARRATIVE: CASE EVENT DATE: 20200711
